FAERS Safety Report 13745228 (Version 1)
Quarter: 2017Q3

REPORT INFORMATION
  Report Type: Spontaneous
  Country: US (occurrence: US)
  Receive Date: 20170712
  Receipt Date: 20170712
  Transmission Date: 20171127
  Serious: Yes (Hospitalization)
  Sender: FDA-Public Use
  Company Number: US-TEVA-786402USA

PATIENT
  Age: 91 Year
  Sex: Female

DRUGS (2)
  1. FENTANYL. [Suspect]
     Active Substance: FENTANYL
     Indication: PAIN
     Dosage: INITIAL DOSAGE NOT KNOWN, RESTARTED AT DOSAGE OF 25MCG
     Route: 062
  2. CEFTRIAXONE. [Concomitant]
     Active Substance: CEFTRIAXONE
     Indication: ENDOCARDITIS BACTERIAL
     Route: 065

REACTIONS (1)
  - Chorea [Recovered/Resolved]
